FAERS Safety Report 17230749 (Version 1)
Quarter: 2020Q1

REPORT INFORMATION
  Report Type: Spontaneous
  Country: US (occurrence: US)
  Receive Date: 20200103
  Receipt Date: 20200103
  Transmission Date: 20200409
  Serious: No
  Sender: FDA-Public Use
  Company Number: US-VIFOR (INTERNATIONAL) INC.-VIT-2019-17031

PATIENT
  Sex: Male

DRUGS (25)
  1. FINASTERIDE. [Concomitant]
     Active Substance: FINASTERIDE
     Dates: start: 20191025
  2. CALCITRIOL. [Concomitant]
     Active Substance: CALCITRIOL
  3. CLOPIDOGREL [Concomitant]
     Active Substance: CLOPIDOGREL BISULFATE
     Dates: start: 20190524
  4. NITROGLYCERIN. [Concomitant]
     Active Substance: NITROGLYCERIN
     Dates: start: 20191001
  5. SIMVASTATIN. [Concomitant]
     Active Substance: SIMVASTATIN
     Dates: start: 20191209
  6. TORSEMIDE. [Concomitant]
     Active Substance: TORSEMIDE
     Dates: start: 20190423
  7. GLIMEPIRIDE. [Concomitant]
     Active Substance: GLIMEPIRIDE
     Dates: start: 20191031
  8. SODIUM BICARBONATE. [Concomitant]
     Active Substance: SODIUM BICARBONATE
     Dates: start: 20190524
  9. CLOPIDOGREL [Concomitant]
     Active Substance: CLOPIDOGREL BISULFATE
     Dates: start: 20191114
  10. TRIAMCINOLONE [Concomitant]
     Active Substance: TRIAMCINOLONE
     Dates: start: 20191123
  11. GLIMEPIRIDE. [Concomitant]
     Active Substance: GLIMEPIRIDE
     Dates: start: 20190508
  12. CONTOUR [Concomitant]
     Dates: start: 20190611
  13. AMLODIPINE [Concomitant]
     Active Substance: AMLODIPINE BESYLATE
  14. TRIAMCINOLONE [Concomitant]
     Active Substance: TRIAMCINOLONE
     Dates: start: 20191125
  15. FINASTERIDE. [Concomitant]
     Active Substance: FINASTERIDE
     Dates: start: 20191024
  16. CALCIUM ACETATE. [Concomitant]
     Active Substance: CALCIUM ACETATE
     Dates: start: 20190227
  17. IRBESARTAN. [Concomitant]
     Active Substance: IRBESARTAN
     Dates: start: 20191031
  18. VELTASSA [Suspect]
     Active Substance: PATIROMER
     Indication: HYPERKALAEMIA
     Dosage: MONDAY. WEDNESDAY AND FRIDAY.
     Route: 048
     Dates: start: 20190728
  19. FINASTERIDE. [Concomitant]
     Active Substance: FINASTERIDE
     Dates: start: 20181031
  20. NYSTATIN. [Concomitant]
     Active Substance: NYSTATIN
     Dates: start: 20181220
  21. SIMVASTATIN. [Concomitant]
     Active Substance: SIMVASTATIN
     Dates: start: 20190320
  22. NITROGLYCERIN. [Concomitant]
     Active Substance: NITROGLYCERIN
     Dates: start: 20190625
  23. IRBESARTAN. [Concomitant]
     Active Substance: IRBESARTAN
     Dates: start: 20190805
  24. IRBESARTAN. [Concomitant]
     Active Substance: IRBESARTAN
     Dates: start: 20190918
  25. IRBESARTAN. [Concomitant]
     Active Substance: IRBESARTAN
     Dates: start: 20190803

REACTIONS (3)
  - Constipation [Not Recovered/Not Resolved]
  - Dyspepsia [Not Recovered/Not Resolved]
  - Inappropriate schedule of product administration [Unknown]
